FAERS Safety Report 10875006 (Version 1)
Quarter: 2015Q1

REPORT INFORMATION
  Report Type: Spontaneous
  Country: JP (occurrence: JP)
  Receive Date: 20150227
  Receipt Date: 20150227
  Transmission Date: 20150721
  Serious: Yes (Hospitalization)
  Sender: FDA-Public Use
  Company Number: JP-SUCAMPO AG-SPI201500122

PATIENT
  Age: 74 Year
  Sex: Male

DRUGS (14)
  1. ADALAT [Concomitant]
     Active Substance: NIFEDIPINE
     Indication: HYPERTENSION
     Dosage: 40 MG, BID
     Route: 048
  2. UNKNOWN [Concomitant]
     Active Substance: UNSPECIFIED INGREDIENT
     Dosage: UNK
     Route: 048
  3. PURSENNID [Suspect]
     Active Substance: SENNOSIDES A AND B
     Indication: CONSTIPATION
     Dosage: 12 MG, QD
     Route: 048
     Dates: start: 20150113
  4. FOSRENOL [Concomitant]
     Active Substance: LANTHANUM CARBONATE
     Indication: HYPERPHOSPHATAEMIA
     Dosage: UNK
     Route: 048
  5. AMITIZA [Suspect]
     Active Substance: LUBIPROSTONE
     Indication: CONSTIPATION
     Dosage: 24 MCG, QD
     Route: 048
     Dates: start: 20150122
  6. SINGULAIR [Concomitant]
     Active Substance: MONTELUKAST SODIUM
     Dosage: UNK
     Route: 048
  7. GASMOTIN [Concomitant]
     Active Substance: MOSAPRIDE CITRATE
     Indication: GASTROINTESTINAL HYPOMOTILITY
     Dosage: UNK
     Route: 048
  8. REGPARA [Concomitant]
     Active Substance: CINACALCET HYDROCHLORIDE
     Indication: BLOOD PARATHYROID HORMONE INCREASED
     Dosage: UNK
     Route: 048
  9. RELVAR ELLIPTA [Concomitant]
     Active Substance: FLUTICASONE FUROATE\VILANTEROL TRIFENATATE
     Dosage: UNK
  10. DAIKENCHUTO [Concomitant]
     Active Substance: HERBALS
     Indication: GASTROINTESTINAL HYPOMOTILITY
     Dosage: UNK, 3 PACKS
     Route: 048
  11. KALIMATE [Concomitant]
     Active Substance: CALCIUM POLYSTYRENE SULFONATE
     Dosage: UNK
     Route: 048
  12. DIOVAN [Concomitant]
     Active Substance: VALSARTAN
     Indication: HYPERTENSION
     Dosage: UNK
     Route: 048
  13. NEXIUM [Concomitant]
     Active Substance: ESOMEPRAZOLE MAGNESIUM
     Indication: GASTROOESOPHAGEAL REFLUX DISEASE
     Dosage: 20 MG, QD
     Route: 048
  14. SULTANOL [Concomitant]
     Active Substance: ALBUTEROL SULFATE
     Dosage: UNK
     Route: 055

REACTIONS (4)
  - Abdominal distension [Recovered/Resolved]
  - Nausea [Recovered/Resolved]
  - Small intestinal obstruction [Recovered/Resolved]
  - Ileus [Recovered/Resolved]

NARRATIVE: CASE EVENT DATE: 20150213
